FAERS Safety Report 8305184-0 (Version None)
Quarter: 2012Q1

REPORT INFORMATION
  Report Type: 
  Country: None (occurrence: None)
  Receive Date: 20120326
  Receipt Date: 20110823
  Transmission Date: 20120608
  Serious: Yes (Hospitalization, Other)
  Sender: FDA-Public Use
  Company Number: PHHY2011US09350

PATIENT
  Age: 53 Year
  Sex: Male

DRUGS (2)
  1. LISINOPRIL [Concomitant]
  2. TASIGNA [Suspect]
     Indication: CHRONIC MYELOID LEUKAEMIA
     Dosage: 300 MG, BID, ORAL
     Route: 048
     Dates: start: 20101105

REACTIONS (4)
  - MUSCULOSKELETAL PAIN [None]
  - COUGH [None]
  - ALOPECIA [None]
  - BACK PAIN [None]
